FAERS Safety Report 15327195 (Version 1)
Quarter: 2018Q3

REPORT INFORMATION
  Report Type: Spontaneous
  Country: FR (occurrence: FR)
  Receive Date: 20180828
  Receipt Date: 20180828
  Transmission Date: 20181010
  Serious: Yes (Hospitalization)
  Sender: FDA-Public Use
  Company Number: FR-TEVA-2018-FR-948887

PATIENT
  Age: 62 Year
  Sex: Male

DRUGS (2)
  1. VALSARTAN ARROW [Suspect]
     Active Substance: VALSARTAN
     Indication: HYPERTENSION
     Route: 048
     Dates: start: 20180524, end: 20180630
  2. ACEBUTOLOL EG 200 MG, COMPRIM? PELLICUL? [Concomitant]
     Indication: HYPERTENSION
     Dosage: 200 MILLIGRAM DAILY;
     Route: 048

REACTIONS (1)
  - Hypersensitivity vasculitis [Recovering/Resolving]

NARRATIVE: CASE EVENT DATE: 201806
